FAERS Safety Report 6190050-X (Version None)
Quarter: 2009Q2

REPORT INFORMATION
  Report Type: 
  Country: None (occurrence: None)
  Receive Date: 20090512
  Receipt Date: 20090512
  Transmission Date: 20091009
  Serious: Yes (Hospitalization)
  Sender: FDA-Public Use
  Company Number: None

PATIENT
  Age: 29 Day
  Sex: Male
  Weight: 3.6288 kg

DRUGS (1)
  1. ERYTHROMYCIN [Suspect]
     Indication: CONJUNCTIVITIS
     Dosage: 1.25ML Q6HR PO
     Route: 048
     Dates: start: 20090418, end: 20090502

REACTIONS (2)
  - NEONATAL DISORDER [None]
  - PYLORIC STENOSIS [None]
